FAERS Safety Report 4265876-X (Version None)
Quarter: 2004Q1

REPORT INFORMATION
  Report Type: 
  Country: None (occurrence: None)
  Receive Date: 20040106
  Receipt Date: 20031222
  Transmission Date: 20041129
  Serious: Yes (Hospitalization)
  Sender: FDA-Public Use
  Company Number: 189257

PATIENT
  Sex: Female
  Weight: 50.8029 kg

DRUGS (6)
  1. AVONEX [Suspect]
     Indication: MULTIPLE SCLEROSIS
     Dosage: 30 MCG QW IM
     Route: 030
     Dates: start: 19980101, end: 20030101
  2. AVONEX [Suspect]
     Indication: MULTIPLE SCLEROSIS
     Dosage: 30 MCG QW IM
     Route: 030
     Dates: start: 20030101
  3. PREMARIN [Concomitant]
  4. ZOCOR [Concomitant]
  5. SECTRAL ^AKITA^ [Concomitant]
  6. BLADDER MEDICATION [Concomitant]

REACTIONS (2)
  - BLADDER DISORDER [None]
  - RECTOCELE [None]
